FAERS Safety Report 25932652 (Version 1)
Quarter: 2025Q4

REPORT INFORMATION
  Report Type: Report from Study
  Country: US (occurrence: US)
  Receive Date: 20251017
  Receipt Date: 20251017
  Transmission Date: 20260118
  Serious: Yes (Hospitalization, Other)
  Sender: ABBVIE
  Company Number: US-ABBVIE-6506036

PATIENT
  Sex: Female

DRUGS (3)
  1. SYNTHROID [Suspect]
     Active Substance: LEVOTHYROXINE SODIUM
     Indication: Product used for unknown indication
     Dosage: 100MCG/TAKE ONE TABLET ONE TIME DAILY
     Route: 048
  2. SYNTHROID [Suspect]
     Active Substance: LEVOTHYROXINE SODIUM
     Indication: Product used for unknown indication
     Dosage: 75MCG/TAKE ONE TABLET ONE TIME DAILY
     Route: 048
  3. SYNTHROID [Suspect]
     Active Substance: LEVOTHYROXINE SODIUM
     Indication: Product used for unknown indication
     Dosage: 75MCG/TAKE ONE TABLET ONE TIME DAILY
     Route: 048

REACTIONS (5)
  - Cerebrovascular accident [Unknown]
  - Product administration error [Unknown]
  - Restlessness [Unknown]
  - Dyskinesia [Unknown]
  - Psychomotor hyperactivity [Unknown]
